FAERS Safety Report 6080144-1 (Version None)
Quarter: 2009Q1

REPORT INFORMATION
  Report Type: 
  Country: None (occurrence: None)
  Receive Date: 20090217
  Receipt Date: 20090204
  Transmission Date: 20090719
  Serious: Yes (Other)
  Sender: FDA-Public Use
  Company Number: IE-PFIZER INC-2009166299

PATIENT

DRUGS (1)
  1. EXEMESTANE [Suspect]
     Dates: start: 20090129

REACTIONS (2)
  - MALAISE [None]
  - UTERINE HAEMORRHAGE [None]
